FAERS Safety Report 15858572 (Version 1)
Quarter: 2019Q1

REPORT INFORMATION
  Report Type: Spontaneous
  Country: IN (occurrence: IN)
  Receive Date: 20190123
  Receipt Date: 20190123
  Transmission Date: 20190417
  Serious: Yes (Other)
  Sender: FDA-Public Use
  Company Number: IN-EPIC PHARMA LLC-2019EPC00011

PATIENT
  Age: 32 Year
  Sex: Male

DRUGS (5)
  1. CLOBAZAM. [Concomitant]
     Active Substance: CLOBAZAM
     Indication: GENERALISED TONIC-CLONIC SEIZURE
     Dosage: 10 MG, 1X/DAY
     Route: 065
  2. SODIUM VALPROATE [Concomitant]
     Active Substance: VALPROATE SODIUM
     Dosage: 500 MG, 2X/DAY
     Route: 065
  3. DEXMEDETOMIDINE. [Suspect]
     Active Substance: DEXMEDETOMIDINE
     Indication: SEDATIVE THERAPY
     Dosage: 0.5-0.7 MCG/KG/H TITRATION
     Route: 042
  4. BUPIVACAINE. [Concomitant]
     Active Substance: BUPIVACAINE
     Indication: THERAPEUTIC PROCEDURE
     Route: 065
  5. PHENYTOIN. [Suspect]
     Active Substance: PHENYTOIN
     Dosage: 1 G OVER 30 MINUTES
     Route: 042

REACTIONS (1)
  - Sedation complication [Recovered/Resolved]
